FAERS Safety Report 5318394-1 (Version None)
Quarter: 2007Q2

REPORT INFORMATION
  Report Type: 
  Country: None (occurrence: None)
  Receive Date: 20070501
  Receipt Date: 20070420
  Transmission Date: 20071010
  Serious: Yes (Hospitalization)
  Sender: FDA-Public Use
  Company Number: TCI2007A01178

PATIENT
  Age: 74 Year
  Sex: Male

DRUGS (4)
  1. ACTOS [Suspect]
     Indication: DIABETES MELLITUS NON-INSULIN-DEPENDENT
     Dosage: 30 MG (30 MG, 1 IN 1 D) PER ORAL
     Route: 048
     Dates: start: 20050720
  2. NATEGLINIDE [Suspect]
     Indication: DIABETES MELLITUS NON-INSULIN-DEPENDENT
     Dosage: 180 MG (60 MG, 3 IN 1 D) PER ORAL
     Route: 048
     Dates: start: 20060106, end: 20061229
  3. AMARYL [Concomitant]
  4. KINEDAK (EPALRESTAT) [Concomitant]

REACTIONS (17)
  - BACTERIA URINE IDENTIFIED [None]
  - BLEEDING TIME PROLONGED [None]
  - BUNDLE BRANCH BLOCK RIGHT [None]
  - COAGULATION TIME PROLONGED [None]
  - COLONIC POLYP [None]
  - DIARRHOEA [None]
  - GALLBLADDER DISORDER [None]
  - GASTRIC CANCER STAGE III [None]
  - GASTRIC ULCER [None]
  - GASTRITIS [None]
  - GASTROOESOPHAGEAL REFLUX DISEASE [None]
  - GLYCOSYLATED HAEMOGLOBIN INCREASED [None]
  - HEPATIC STEATOSIS [None]
  - NASOPHARYNGITIS [None]
  - PYLORIC STENOSIS [None]
  - REFLUX OESOPHAGITIS [None]
  - URINE ANALYSIS ABNORMAL [None]
